FAERS Safety Report 23287033 (Version 2)
Quarter: 2023Q4

REPORT INFORMATION
  Report Type: Spontaneous
  Country: CN (occurrence: CN)
  Receive Date: 20231212
  Receipt Date: 20231218
  Transmission Date: 20240109
  Serious: Yes (Death, Life-Threatening, Hospitalization, Other)
  Sender: FDA-Public Use
  Company Number: CN-STRIDES ARCOLAB LIMITED-2023SP018498

PATIENT
  Age: 68 Year
  Sex: Male

DRUGS (12)
  1. PREDNISONE [Suspect]
     Active Substance: PREDNISONE
     Indication: Anti-neutrophil cytoplasmic antibody positive vasculitis
     Dosage: 40 MILLIGRAM/DAY (DOSE WAS REDUCED BY 4MG EVERY 2 WEEKS.)
     Route: 048
     Dates: start: 202207, end: 202207
  2. PREDNISONE [Suspect]
     Active Substance: PREDNISONE
     Dosage: 16 MILLIGRAM/DAY (DOSE REDUCED 4MG EVERY WEEK)
     Route: 048
     Dates: start: 202208, end: 202208
  3. PREDNISONE [Suspect]
     Active Substance: PREDNISONE
     Dosage: 8 MILLIGRAM/DAY
     Route: 048
  4. PREDNISONE [Suspect]
     Active Substance: PREDNISONE
     Dosage: 36 MILLIGRAM, QD
     Route: 048
     Dates: start: 202207, end: 202207
  5. PREDNISONE [Suspect]
     Active Substance: PREDNISONE
     Dosage: UNK, QD, DECREASED BY 4 MG EVERY WEEK.
     Route: 048
     Dates: start: 202208
  6. PREDNISONE [Suspect]
     Active Substance: PREDNISONE
     Dosage: UNK, QD, REDUCED BY 4 MG EVERY 2 WEEKS.
     Route: 048
     Dates: start: 202208
  7. METHYLPREDNISOLONE [Suspect]
     Active Substance: METHYLPREDNISOLONE
     Indication: Anti-neutrophil cytoplasmic antibody positive vasculitis
     Dosage: 0.25 GRAM, QD
     Route: 065
     Dates: start: 202207, end: 202207
  8. METHYLPREDNISOLONE [Suspect]
     Active Substance: METHYLPREDNISOLONE
     Dosage: 40 MILLIGRAM, QD
     Route: 041
     Dates: start: 202207, end: 202207
  9. CYCLOPHOSPHAMIDE [Concomitant]
     Active Substance: CYCLOPHOSPHAMIDE
     Indication: Immunosuppressant drug therapy
     Dosage: 0.6 GRAM, QD
     Route: 042
     Dates: start: 202207, end: 202207
  10. SULFAMETHOXAZOLE [Concomitant]
     Active Substance: SULFAMETHOXAZOLE
     Indication: Antifungal prophylaxis
     Dosage: UNK
     Route: 065
     Dates: start: 202207
  11. SULFAMETHOXAZOLE [Concomitant]
     Active Substance: SULFAMETHOXAZOLE
     Dosage: UNK
     Route: 065
  12. PIPERACILLIN SODIUM\TAZOBACTAM SODIUM [Concomitant]
     Active Substance: PIPERACILLIN SODIUM\TAZOBACTAM SODIUM
     Indication: Antibiotic therapy
     Dosage: UNK
     Route: 065
     Dates: start: 202207

REACTIONS (7)
  - Death [Fatal]
  - Pulmonary tuberculosis [Unknown]
  - Pneumonia legionella [Unknown]
  - Pneumonia klebsiella [Unknown]
  - Pneumonia pseudomonal [Unknown]
  - Pneumocystis jirovecii pneumonia [Unknown]
  - Off label use [Unknown]

NARRATIVE: CASE EVENT DATE: 20220101
